FAERS Safety Report 8687329 (Version 2)
Quarter: 2012Q4

REPORT INFORMATION
  Report Type: 
  Country: JP (occurrence: JP)
  Receive Date: 20120727
  Receipt Date: 20120824
  Transmission Date: 20130627
  Serious: Yes (Death, Hospitalization)
  Sender: FDA-Public Use
  Company Number: JP-PFIZER INC-2012178649

PATIENT
  Age: 85 None
  Sex: Male
  Weight: 45.3 kg

DRUGS (6)
  1. NOVASTAN [Suspect]
     Indication: ANTICOAGULANT THERAPY
     Dosage: UNK
     Route: 051
  2. LANSOPRAZOLE [Concomitant]
     Dosage: 15 mg, UNK
  3. ALFACALCIDOL [Concomitant]
     Dosage: 0.25 ug, UNK
  4. CALCIUM CARBONATE [Concomitant]
     Dosage: 1000 mg, UNK
  5. NITROGLYCERIN [Concomitant]
     Dosage: 25 mg, UNK
  6. WARFARIN [Concomitant]
     Dosage: 2.5 mg, UNK

REACTIONS (2)
  - Cardio-respiratory arrest [Fatal]
  - Haemorrhage [Unknown]
